FAERS Safety Report 8982841 (Version 1)
Quarter: 2012Q4

REPORT INFORMATION
  Report Type: Report from Study
  Country: GB (occurrence: GB)
  Receive Date: 20121221
  Receipt Date: 20121221
  Transmission Date: 20130627
  Serious: Yes (Other)
  Sender: FDA-Public Use
  Company Number: GB-ABBOTT-12P-167-0999507-00

PATIENT
  Age: 64 Year
  Sex: Female
  Weight: 78.3 kg

DRUGS (4)
  1. HUMIRA [Suspect]
     Indication: RHEUMATOID ARTHRITIS
     Route: 058
     Dates: start: 20121013
  2. MEPRADEC [Concomitant]
     Indication: DYSPEPSIA
     Route: 048
  3. MORPHINE [Concomitant]
     Indication: PAIN
     Route: 048
  4. HYPROMELLOSE [Concomitant]
     Indication: PRODUCT USED FOR UNKNOWN INDICATION
     Dosage: 2 drops in each eye

REACTIONS (6)
  - Pollakiuria [Recovered/Resolved]
  - Cystitis [Unknown]
  - Urinary tract infection [Recovered/Resolved]
  - Pyelonephritis [Recovered/Resolved]
  - Pain [Recovered/Resolved]
  - Haemorrhage [Recovered/Resolved]
